FAERS Safety Report 11391610 (Version 1)
Quarter: 2015Q3

REPORT INFORMATION
  Report Type: Spontaneous
  Country: JP (occurrence: JP)
  Receive Date: 20150818
  Receipt Date: 20150818
  Transmission Date: 20151125
  Serious: Yes (Hospitalization, Other)
  Sender: FDA-Public Use
  Company Number: JP-PFIZER INC-2015267503

PATIENT
  Age: 71 Year
  Sex: Female
  Weight: 35 kg

DRUGS (19)
  1. CAMPTO [Suspect]
     Active Substance: IRINOTECAN
     Dosage: 187.5 MG, 1X/DAY
     Route: 041
     Dates: start: 20141015, end: 20141015
  2. ELPLAT [Suspect]
     Active Substance: OXALIPLATIN
     Dosage: 81 MG, 1X/DAY
     Route: 041
     Dates: start: 20140917, end: 20140917
  3. LEVOFOLINATE [Suspect]
     Active Substance: LEVOLEUCOVORIN CALCIUM
     Dosage: 250 MG, 1X/DAY
     Route: 041
     Dates: start: 20141015, end: 20141015
  4. CAMPTO [Suspect]
     Active Substance: IRINOTECAN
     Indication: PANCREATIC CARCINOMA
     Dosage: 187.5 MG, 1X/DAY
     Route: 041
     Dates: start: 20140731, end: 20140731
  5. CAMPTO [Suspect]
     Active Substance: IRINOTECAN
     Dosage: 187.5 MG, 1X/DAY
     Route: 041
     Dates: start: 20140903, end: 20140903
  6. CAMPTO [Suspect]
     Active Substance: IRINOTECAN
     Dosage: 187.5 MG, 1X/DAY
     Route: 041
     Dates: start: 20141001, end: 20141001
  7. LEVOFOLINATE [Suspect]
     Active Substance: LEVOLEUCOVORIN CALCIUM
     Indication: PANCREATIC CARCINOMA
     Dosage: 250 MG, 1X/DAY
     Route: 041
     Dates: start: 20140731, end: 20140731
  8. LEVOFOLINATE [Suspect]
     Active Substance: LEVOLEUCOVORIN CALCIUM
     Dosage: 250 MG, 1X/DAY
     Route: 041
     Dates: start: 20140917, end: 20140917
  9. LEVOFOLINATE [Suspect]
     Active Substance: LEVOLEUCOVORIN CALCIUM
     Dosage: 250 MG, 1X/DAY
     Route: 041
     Dates: start: 20141029, end: 20141029
  10. CAMPTO [Suspect]
     Active Substance: IRINOTECAN
     Dosage: 187.5 MG, 1X/DAY
     Route: 041
     Dates: start: 20141029, end: 20141029
  11. LEVOFOLINATE [Suspect]
     Active Substance: LEVOLEUCOVORIN CALCIUM
     Dosage: 250 MG, 1X/DAY
     Route: 041
     Dates: start: 20141001, end: 20141001
  12. 5-FU /00098801/ [Concomitant]
     Active Substance: FLUOROURACIL
     Indication: PANCREATIC CARCINOMA
     Dosage: UNK
     Dates: start: 20140731, end: 20141029
  13. ELPLAT [Suspect]
     Active Substance: OXALIPLATIN
     Indication: PANCREATIC CARCINOMA
     Dosage: 106.25 MG, 1X/DAY
     Route: 041
     Dates: start: 20140731, end: 20140731
  14. ELPLAT [Suspect]
     Active Substance: OXALIPLATIN
     Dosage: 81 MG, 1X/DAY
     Route: 041
     Dates: start: 20140903, end: 20140903
  15. CAMPTO [Suspect]
     Active Substance: IRINOTECAN
     Dosage: 187.5 MG, 1X/DAY
     Route: 041
     Dates: start: 20140917, end: 20140917
  16. ELPLAT [Suspect]
     Active Substance: OXALIPLATIN
     Dosage: 81 MG, 1X/DAY
     Route: 041
     Dates: start: 20141001, end: 20141001
  17. ELPLAT [Suspect]
     Active Substance: OXALIPLATIN
     Dosage: 81 MG, 1X/DAY
     Route: 041
     Dates: start: 20141015, end: 20141015
  18. ELPLAT [Suspect]
     Active Substance: OXALIPLATIN
     Dosage: 81 MG, 1X/DAY
     Route: 041
     Dates: start: 20141029, end: 20141029
  19. LEVOFOLINATE [Suspect]
     Active Substance: LEVOLEUCOVORIN CALCIUM
     Dosage: 250 MG, 1X/DAY
     Route: 041
     Dates: start: 20140903, end: 20140903

REACTIONS (12)
  - White blood cell count decreased [Recovered/Resolved]
  - Haemoglobin decreased [Not Recovered/Not Resolved]
  - Fatigue [Not Recovered/Not Resolved]
  - Aspartate aminotransferase increased [Recovered/Resolved]
  - Embolism [Unknown]
  - Pyrexia [Recovered/Resolved]
  - Diarrhoea [Recovered/Resolved]
  - Alanine aminotransferase increased [Recovered/Resolved]
  - Neutrophil count decreased [Recovering/Resolving]
  - Decreased appetite [Not Recovered/Not Resolved]
  - Peripheral sensory neuropathy [Recovered/Resolved]
  - Lung infection [Unknown]

NARRATIVE: CASE EVENT DATE: 20140814
